FAERS Safety Report 6079976-5 (Version None)
Quarter: 2009Q1

REPORT INFORMATION
  Report Type: 
  Country: None (occurrence: None)
  Receive Date: 20090217
  Receipt Date: 20081113
  Transmission Date: 20090719
  Serious: No
  Sender: FDA-Public Use
  Company Number: A0756220A

PATIENT
  Age: 73 Year
  Sex: Female

DRUGS (4)
  1. COREG CR [Suspect]
     Indication: HYPERTENSION
     Dosage: 40MG PER DAY
     Route: 048
     Dates: start: 20081103
  2. FISH OILS [Concomitant]
  3. THYROID MEDICATION [Concomitant]
  4. AMLODIPINE [Concomitant]

REACTIONS (1)
  - ASTHENIA [None]
